FAERS Safety Report 17675689 (Version 1)
Quarter: 2020Q2

REPORT INFORMATION
  Report Type: Spontaneous
  Country: US (occurrence: US)
  Receive Date: 20200416
  Receipt Date: 20200416
  Transmission Date: 20200714
  Serious: No
  Sender: FDA-Public Use
  Company Number: US-ELI_LILLY_AND_COMPANY-US202004005720

PATIENT
  Sex: Female

DRUGS (2)
  1. HUMALOG [Suspect]
     Active Substance: INSULIN LISPRO
     Indication: PRODUCT USED FOR UNKNOWN INDICATION
     Dosage: 75 U, PRN (DAILY DEPENDING ON BLOOD GLUCOSE)
     Route: 065
  2. HUMALOG [Suspect]
     Active Substance: INSULIN LISPRO
     Indication: PRODUCT USED FOR UNKNOWN INDICATION
     Dosage: 75 U, PRN (DEPENDING ON BLOOD GLUCOSE)
     Route: 065

REACTIONS (4)
  - Wrong patient received product [Unknown]
  - Wrong dosage formulation [Unknown]
  - Blood glucose increased [Unknown]
  - Wrong technique in product usage process [Unknown]
